FAERS Safety Report 21813224 (Version 4)
Quarter: 2023Q1

REPORT INFORMATION
  Report Type: Report from Study
  Country: CO (occurrence: CO)
  Receive Date: 20230103
  Receipt Date: 20230307
  Transmission Date: 20230418
  Serious: Yes (Other)
  Sender: FDA-Public Use
  Company Number: CO-002147023-PHHY2018CO121981

PATIENT

DRUGS (9)
  1. RUXOLITINIB [Suspect]
     Active Substance: RUXOLITINIB
     Indication: Myelofibrosis
     Dosage: 30 MG, QD
     Route: 048
  2. RUXOLITINIB [Suspect]
     Active Substance: RUXOLITINIB
     Dosage: 10 MG, BID (1EVERY 12 HOURS)
     Route: 048
     Dates: start: 201709
  3. RUXOLITINIB [Suspect]
     Active Substance: RUXOLITINIB
     Dosage: 15 MG, BID (1EVERY 12 HOURS)
     Route: 048
  4. RUXOLITINIB [Suspect]
     Active Substance: RUXOLITINIB
     Dosage: 1 DOSAGE FORM (15 MG), DAILY
     Route: 065
  5. RUXOLITINIB [Suspect]
     Active Substance: RUXOLITINIB
     Dosage: 2 DOSAGE FORM OF 15 MG (30 MG), DAILY
     Route: 065
  6. RUXOLITINIB [Suspect]
     Active Substance: RUXOLITINIB
     Dosage: 15 MG, Q12H
     Route: 048
     Dates: start: 2018
  7. RUXOLITINIB [Suspect]
     Active Substance: RUXOLITINIB
     Dosage: UNK (ONE DAY ONE TABLET AND THE NEXT ONE TWO TABLETS)
     Route: 048
  8. RUXOLITINIB [Suspect]
     Active Substance: RUXOLITINIB
     Dosage: 15 MG EVERY 12 HOURS ONE DAY AND JUST 15 MG THE NEXT ONE
     Route: 048
  9. RUXOLITINIB [Suspect]
     Active Substance: RUXOLITINIB
     Dosage: INTERCALARY DOSE/TWO TABLETS DAILY ONE DAY AND THE NEXT DAY ONE, MEANING 30 MG IN ONE DAY, 15 MG IN
     Route: 048

REACTIONS (11)
  - COVID-19 [Unknown]
  - Decreased immune responsiveness [Unknown]
  - Headache [Unknown]
  - Haemoglobin decreased [Unknown]
  - Off label use [Unknown]
  - Myalgia [Unknown]
  - Platelet count decreased [Unknown]
  - Product supply issue [Unknown]
  - Haemoglobin increased [Unknown]
  - Platelet count increased [Unknown]
  - Anxiety [Unknown]

NARRATIVE: CASE EVENT DATE: 20220601
